FAERS Safety Report 10196379 (Version 1)
Quarter: 2014Q2

REPORT INFORMATION
  Report Type: Spontaneous
  Country: US (occurrence: None)
  Receive Date: 20140522
  Receipt Date: 20140522
  Transmission Date: 20141212
  Serious: Yes (Other)
  Sender: FDA-Public Use
  Company Number: 001736771A

PATIENT
  Age: 37 Year
  Sex: Female

DRUGS (1)
  1. SHEER COVER NOURISHING MOISTURIZER SPF 15 [Suspect]
     Dosage: DAILY DERMAL
     Dates: start: 20140316, end: 20140320

REACTIONS (4)
  - Application site pruritus [None]
  - Application site rash [None]
  - Application site urticaria [None]
  - Skin discolouration [None]
